FAERS Safety Report 11647849 (Version 1)
Quarter: 2015Q4

REPORT INFORMATION
  Report Type: Spontaneous
  Country: DE (occurrence: None)
  Receive Date: 20151020
  Receipt Date: 20151020
  Transmission Date: 20160304
  Serious: Yes (Other)
  Sender: FDA-Public Use
  Company Number: None

PATIENT
  Sex: Female

DRUGS (2)
  1. DAKLINZA [Suspect]
     Active Substance: DACLATASVIR
     Indication: HEPATITIS C
     Route: 048
     Dates: start: 20141031, end: 20150416
  2. SOVALDI [Suspect]
     Active Substance: SOFOSBUVIR
     Indication: HEPATITIS C
     Route: 048
     Dates: start: 20141031, end: 20150416

REACTIONS (2)
  - Hepatocellular carcinoma [None]
  - Hepatic cancer recurrent [None]

NARRATIVE: CASE EVENT DATE: 20150326
